FAERS Safety Report 16314005 (Version 1)
Quarter: 2019Q2

REPORT INFORMATION
  Report Type: Spontaneous
  Country: US (occurrence: US)
  Receive Date: 20190515
  Receipt Date: 20190515
  Transmission Date: 20190711
  Serious: No
  Sender: FDA-Public Use
  Company Number: US-PFIZER INC-2019200029

PATIENT
  Age: 77 Year

DRUGS (1)
  1. AMLODIPINE BESILATE [Suspect]
     Active Substance: AMLODIPINE BESYLATE
     Indication: BLOOD PRESSURE ABNORMAL
     Dosage: 2.5 MG, DAILY (TAKE 1 TABLET 2.5 MG TOTAL FOR 180 DAYS)
     Route: 048

REACTIONS (2)
  - Drug hypersensitivity [Unknown]
  - Swelling [Unknown]
